FAERS Safety Report 25712135 (Version 1)
Quarter: 2025Q3

REPORT INFORMATION
  Report Type: Spontaneous
  Country: EU (occurrence: EU)
  Receive Date: 20250821
  Receipt Date: 20250821
  Transmission Date: 20251021
  Serious: Yes (Life-Threatening)
  Sender: MYLAN
  Company Number: None

PATIENT
  Age: 61 Year
  Sex: Female
  Weight: 77 kg

DRUGS (20)
  1. VALSARTAN [Suspect]
     Active Substance: VALSARTAN
     Indication: Product used for unknown indication
     Dosage: 30 DOSAGE FORM, QD ((40 MG X 30 TABLETS))
     Dates: start: 20250623, end: 20250623
  2. VALSARTAN [Suspect]
     Active Substance: VALSARTAN
     Dosage: 30 DOSAGE FORM, QD ((40 MG X 30 TABLETS))
     Route: 048
     Dates: start: 20250623, end: 20250623
  3. VALSARTAN [Suspect]
     Active Substance: VALSARTAN
     Dosage: 30 DOSAGE FORM, QD ((40 MG X 30 TABLETS))
     Route: 048
     Dates: start: 20250623, end: 20250623
  4. VALSARTAN [Suspect]
     Active Substance: VALSARTAN
     Dosage: 30 DOSAGE FORM, QD ((40 MG X 30 TABLETS))
     Dates: start: 20250623, end: 20250623
  5. BISOPROLOL [Suspect]
     Active Substance: BISOPROLOL
     Indication: Product used for unknown indication
     Dosage: 18 DOSAGE FORM, QD ((1.25 MILLIGRAM X 18 TABLETS))
     Dates: start: 20250623, end: 20250623
  6. BISOPROLOL [Suspect]
     Active Substance: BISOPROLOL
     Dosage: 18 DOSAGE FORM, QD ((1.25 MILLIGRAM X 18 TABLETS))
     Route: 048
     Dates: start: 20250623, end: 20250623
  7. BISOPROLOL [Suspect]
     Active Substance: BISOPROLOL
     Dosage: 18 DOSAGE FORM, QD ((1.25 MILLIGRAM X 18 TABLETS))
     Route: 048
     Dates: start: 20250623, end: 20250623
  8. BISOPROLOL [Suspect]
     Active Substance: BISOPROLOL
     Dosage: 18 DOSAGE FORM, QD ((1.25 MILLIGRAM X 18 TABLETS))
     Dates: start: 20250623, end: 20250623
  9. BROMAZEPAM [Suspect]
     Active Substance: BROMAZEPAM
     Indication: Product used for unknown indication
     Dosage: QD (6 MG X 30 TO 40 TABLETS)
     Dates: start: 20250623, end: 20250623
  10. BROMAZEPAM [Suspect]
     Active Substance: BROMAZEPAM
     Dosage: QD (6 MG X 30 TO 40 TABLETS)
     Route: 048
     Dates: start: 20250623, end: 20250623
  11. BROMAZEPAM [Suspect]
     Active Substance: BROMAZEPAM
     Dosage: QD (6 MG X 30 TO 40 TABLETS)
     Route: 048
     Dates: start: 20250623, end: 20250623
  12. BROMAZEPAM [Suspect]
     Active Substance: BROMAZEPAM
     Dosage: QD (6 MG X 30 TO 40 TABLETS)
     Dates: start: 20250623, end: 20250623
  13. POTASSIUM CHLORIDE [Suspect]
     Active Substance: POTASSIUM CHLORIDE
     Indication: Product used for unknown indication
     Dosage: 20 DOSAGE FORM, QD
     Dates: start: 20250623, end: 20250623
  14. POTASSIUM CHLORIDE [Suspect]
     Active Substance: POTASSIUM CHLORIDE
     Dosage: 20 DOSAGE FORM, QD
     Route: 048
     Dates: start: 20250623, end: 20250623
  15. POTASSIUM CHLORIDE [Suspect]
     Active Substance: POTASSIUM CHLORIDE
     Dosage: 20 DOSAGE FORM, QD
     Route: 048
     Dates: start: 20250623, end: 20250623
  16. POTASSIUM CHLORIDE [Suspect]
     Active Substance: POTASSIUM CHLORIDE
     Dosage: 20 DOSAGE FORM, QD
     Dates: start: 20250623, end: 20250623
  17. KARDEGIC [Suspect]
     Active Substance: ASPIRIN DL-LYSINE
     Indication: Product used for unknown indication
     Dosage: 30 DOSAGE FORM, QD
     Dates: start: 20250623, end: 20250623
  18. KARDEGIC [Suspect]
     Active Substance: ASPIRIN DL-LYSINE
     Dosage: 30 DOSAGE FORM, QD
     Route: 048
     Dates: start: 20250623, end: 20250623
  19. KARDEGIC [Suspect]
     Active Substance: ASPIRIN DL-LYSINE
     Dosage: 30 DOSAGE FORM, QD
     Route: 048
     Dates: start: 20250623, end: 20250623
  20. KARDEGIC [Suspect]
     Active Substance: ASPIRIN DL-LYSINE
     Dosage: 30 DOSAGE FORM, QD
     Dates: start: 20250623, end: 20250623

REACTIONS (4)
  - Hyperkalaemia [Recovered/Resolved]
  - Acute kidney injury [Recovered/Resolved]
  - Metabolic acidosis [Recovered/Resolved]
  - Poisoning deliberate [Recovered/Resolved]

NARRATIVE: CASE EVENT DATE: 20250623
